FAERS Safety Report 8887467 (Version 2)
Quarter: 2012Q4

REPORT INFORMATION
  Report Type: 
  Country: JP (occurrence: JP)
  Receive Date: 20121105
  Receipt Date: 20121205
  Transmission Date: 20130627
  Serious: Yes (Hospitalization)
  Sender: FDA-Public Use
  Company Number: JP-BAXTER-2012BAX022050

PATIENT
  Sex: Female

DRUGS (3)
  1. DIANEAL-N PD-4 1.5 [Suspect]
     Indication: DIABETIC NEPHROPATHY
     Route: 033
  2. DIANEAL [Suspect]
     Indication: DIABETIC NEPHROPATHY
     Route: 033
  3. EXTRANEAL [Suspect]
     Indication: DIABETIC NEPHROPATHY
     Route: 033

REACTIONS (1)
  - Fluid retention [Recovered/Resolved]
